FAERS Safety Report 8207698-0 (Version None)
Quarter: 2012Q1

REPORT INFORMATION
  Report Type: 
  Country: None (occurrence: None)
  Receive Date: 20120314
  Receipt Date: 20120120
  Transmission Date: 20120608
  Serious: No
  Sender: FDA-Public Use
  Company Number: US-MYLANLABS-2011S1025996

PATIENT
  Age: 59 Year
  Sex: Female
  Weight: 65.77 kg

DRUGS (4)
  1. TRIAMTERENE AND HYDROCHLOROTHIAZIDE [Concomitant]
     Dosage: 75MG/50MG
  2. VERAPAMIL [Suspect]
     Indication: HYPERTENSION
     Route: 048
  3. PRAVASTATIN [Concomitant]
  4. POTASSIUM CHLORIDE [Suspect]
     Indication: MINERAL SUPPLEMENTATION
     Route: 048

REACTIONS (4)
  - DRY MOUTH [None]
  - CONSTIPATION [None]
  - DYSPEPSIA [None]
  - BODY TEMPERATURE INCREASED [None]
